FAERS Safety Report 8266278-1 (Version None)
Quarter: 2012Q2

REPORT INFORMATION
  Report Type: 
  Country: None (occurrence: None)
  Receive Date: 20120406
  Receipt Date: 20120323
  Transmission Date: 20120825
  Serious: Yes (Hospitalization, Other)
  Sender: FDA-Public Use
  Company Number: PHHY2012FR025836

PATIENT
  Sex: Male

DRUGS (19)
  1. MYFORTIC [Suspect]
     Indication: LUNG TRANSPLANT
     Dosage: 360 MG, QID
  2. IMMUNE GLOBULIN (HUMAN) [Suspect]
     Dosage: 5 G, UNK
     Route: 042
  3. PRIVIGEN [Suspect]
     Dosage: 10 G, UNK
     Route: 042
  4. PRIVIGEN [Suspect]
     Dosage: 5 G, UNK
     Route: 042
  5. RITUXIMAB [Concomitant]
     Dosage: UNK UKN, UNK
  6. IMMUNE GLOBULIN (HUMAN) [Concomitant]
     Dosage: UNK UKN, UNK
     Route: 042
  7. IMMUNE GLOBULIN (HUMAN) [Suspect]
     Dosage: 5 G, UNK
     Route: 042
  8. PREDNISONE TAB [Suspect]
     Indication: LUNG TRANSPLANT
     Dosage: 10 MG, QD
  9. PRIVIGEN [Suspect]
     Dosage: 10 G, UNK
     Route: 042
  10. PLASMAPHERESIS BLOOD-PACK SYSTEM INFUSION [Concomitant]
     Dosage: UNK UKN, UNK
     Dates: start: 20120201
  11. PRIVIGEN [Suspect]
     Dosage: 10 G, UNK
     Route: 042
  12. PLASMAPHERESIS BLOOD-PACK SYSTEM INFUSION [Concomitant]
     Dosage: UNK UKN, UNK
     Dates: start: 20120214, end: 20120215
  13. PLASMAPHERESIS BLOOD-PACK SYSTEM INFUSION [Concomitant]
     Dosage: UNK UKN, UNK
     Dates: start: 20120130
  14. PLASMAPHERESIS BLOOD-PACK SYSTEM INFUSION [Concomitant]
     Dosage: UNK UKN, UNK
     Dates: start: 20120131
  15. PROGRAF [Suspect]
     Indication: LUNG TRANSPLANT
     Dosage: 5.5 MG, DAILY
  16. IMMUNE GLOBULIN (HUMAN) [Suspect]
     Dosage: 5 G, UNK
     Route: 042
  17. PRIVIGEN [Suspect]
     Dosage: 60 G, UNK
     Route: 042
  18. IMMUNE GLOBULIN (HUMAN) [Suspect]
     Dosage: 5 G, UNK
     Route: 042
  19. PRIVIGEN [Suspect]
     Dosage: 10 G, UNK
     Route: 042

REACTIONS (9)
  - NEUTROPENIA [None]
  - LEUKOPENIA [None]
  - BONE MARROW FAILURE [None]
  - THROMBOSIS [None]
  - THROMBOCYTOPENIA [None]
  - HYPOFIBRINOGENAEMIA [None]
  - PANCYTOPENIA [None]
  - LYMPHOPENIA [None]
  - ANAEMIA [None]
